FAERS Safety Report 8514748 (Version 3)
Quarter: 2013Q3

REPORT INFORMATION
  Report Type: Report from Study
  Country: CA (occurrence: CA)
  Receive Date: 20120416
  Receipt Date: 20130903
  Transmission Date: 20140515
  Serious: Yes (Hospitalization)
  Sender: FDA-Public Use
  Company Number: PHHO2012CA005621

PATIENT
  Age: 73 Year
  Sex: Female
  Weight: 87.6 kg

DRUGS (10)
  1. AMITRIPTYLINE [Suspect]
     Indication: PAIN
     Dosage: UNK
     Dates: end: 201203
  2. OXYBUTYNIN [Suspect]
     Indication: URINARY INCONTINENCE
     Dosage: UNK
     Dates: end: 201203
  3. ALISKIREN [Suspect]
     Indication: CARDIOVASCULAR DISORDER
     Route: 048
     Dates: start: 20080528
  4. LANTUS [Concomitant]
     Indication: DIABETES MELLITUS
     Dosage: UNK
  5. INSULIN ASPART [Concomitant]
     Indication: DIABETES MELLITUS
     Dosage: UNK
  6. LEVOTHYROXINE [Concomitant]
     Indication: HYPOTHYROIDISM
     Dosage: UNK
  7. LOSARTAN [Concomitant]
     Indication: HYPERTENSION
     Dosage: 100 MG, UNK
  8. LOSARTAN [Concomitant]
     Dosage: 80 MG, UNK
  9. MIRTAZAPINE [Concomitant]
     Indication: DEPRESSION
  10. PRIMIDONE [Concomitant]
     Dosage: UNK

REACTIONS (1)
  - Familial hypocalciuric hypercalcaemia [Recovered/Resolved]
